FAERS Safety Report 13007413 (Version 1)
Quarter: 2016Q4

REPORT INFORMATION
  Report Type: Spontaneous
  Country: US (occurrence: US)
  Receive Date: 20161207
  Receipt Date: 20161207
  Transmission Date: 20170207
  Serious: Yes (Hospitalization)
  Sender: FDA-Public Use
  Company Number: US-BEH-2016075826

PATIENT
  Sex: Female
  Weight: 122.45 kg

DRUGS (26)
  1. LIPITOR [Concomitant]
     Active Substance: ATORVASTATIN CALCIUM
  2. RANEXA [Concomitant]
     Active Substance: RANOLAZINE
  3. ZANTAC [Concomitant]
     Active Substance: RANITIDINE HYDROCHLORIDE
  4. EPIPEN [Concomitant]
     Active Substance: EPINEPHRINE
  5. ZOFRAN [Concomitant]
     Active Substance: ONDANSETRON HYDROCHLORIDE
  6. MIRAPEX [Concomitant]
     Active Substance: PRAMIPEXOLE DIHYDROCHLORIDE
  7. SPIRONOLACTONE. [Concomitant]
     Active Substance: SPIRONOLACTONE
  8. METOPROLOL. [Concomitant]
     Active Substance: METOPROLOL
  9. DIPHENHYDRAMINE. [Concomitant]
     Active Substance: DIPHENHYDRAMINE
  10. FERROUS SULFATE. [Concomitant]
     Active Substance: FERROUS SULFATE
  11. VITAMIN D2 [Concomitant]
     Active Substance: ERGOCALCIFEROL
  12. NORMAL SALINE [Concomitant]
     Active Substance: SODIUM CHLORIDE
  13. COUMADIN [Concomitant]
     Active Substance: WARFARIN SODIUM
  14. KLOR-CON [Concomitant]
     Active Substance: POTASSIUM CHLORIDE
  15. BERINERT [Suspect]
     Active Substance: HUMAN C1-ESTERASE INHIBITOR
     Indication: COMPLEMENT DEFICIENCY DISEASE
     Dosage: 2500 IU, UNK
     Route: 042
     Dates: start: 20150415
  16. HEPARIN [Concomitant]
     Active Substance: HEPARIN SODIUM
  17. TRAMADOL. [Concomitant]
     Active Substance: TRAMADOL
  18. SINGULAIR [Concomitant]
     Active Substance: MONTELUKAST SODIUM
  19. LASIX [Concomitant]
     Active Substance: FUROSEMIDE
  20. VITAMIN B12 [Concomitant]
     Active Substance: CYANOCOBALAMIN
  21. TOPIRAMATE. [Concomitant]
     Active Substance: TOPIRAMATE
  22. STERILE WATER [Concomitant]
     Active Substance: WATER
  23. GABAPENTIN. [Concomitant]
     Active Substance: GABAPENTIN
  24. VIMPAT [Concomitant]
     Active Substance: LACOSAMIDE
  25. ZYRTEC [Concomitant]
     Active Substance: CETIRIZINE HYDROCHLORIDE
  26. SODIUM CHLORIDE. [Concomitant]
     Active Substance: SODIUM CHLORIDE

REACTIONS (1)
  - Lower respiratory tract infection [Unknown]
